FAERS Safety Report 11782445 (Version 2)
Quarter: 2015Q4

REPORT INFORMATION
  Report Type: Spontaneous
  Country: GB (occurrence: GB)
  Receive Date: 20151127
  Receipt Date: 20151208
  Transmission Date: 20160305
  Serious: Yes (Hospitalization)
  Sender: FDA-Public Use
  Company Number: GB-AMGEN-GBRSP2015123446

PATIENT
  Age: 68 Year
  Sex: Female

DRUGS (1)
  1. ARANESP [Suspect]
     Active Substance: DARBEPOETIN ALFA
     Indication: ANAEMIA
     Dosage: 30 MUG, QWK
     Route: 065

REACTIONS (5)
  - Wrong technique in product usage process [Unknown]
  - Incorrect product storage [Unknown]
  - Renal disorder [Unknown]
  - Cardiac disorder [Unknown]
  - Fistula [Unknown]
